FAERS Safety Report 10022177 (Version 1)
Quarter: 2014Q1

REPORT INFORMATION
  Report Type: Spontaneous
  Country: FR (occurrence: FR)
  Receive Date: 20140319
  Receipt Date: 20140319
  Transmission Date: 20141002
  Serious: Yes (Death)
  Sender: FDA-Public Use
  Company Number: FR-UCBSA-114568

PATIENT
  Age: 86 Year
  Sex: Female

DRUGS (7)
  1. XYZALL [Suspect]
     Route: 048
     Dates: start: 20140127, end: 20140130
  2. DIFFU K [Suspect]
     Route: 048
     Dates: start: 20140127, end: 20140130
  3. EUPANTOL [Suspect]
     Route: 042
     Dates: start: 20140112, end: 20140130
  4. AMIODARONE [Suspect]
     Route: 048
     Dates: start: 20140111, end: 20140130
  5. FUSIDIC ACID [Suspect]
     Dosage: 1 DF 1/DAY. CUT
     Dates: start: 20140118, end: 20140130
  6. VITAMIN K1 [Suspect]
     Dosage: 10 MG
     Route: 042
     Dates: start: 20140128, end: 20140130
  7. CALCIDIA [Suspect]
     Route: 048
     Dates: start: 20140107, end: 20140130

REACTIONS (2)
  - Erythema [Fatal]
  - Rash [Fatal]
